FAERS Safety Report 9780873 (Version 1)
Quarter: 2013Q4

REPORT INFORMATION
  Report Type: Spontaneous
  Country: AU (occurrence: AU)
  Receive Date: 20131224
  Receipt Date: 20131224
  Transmission Date: 20140711
  Serious: Yes (Other)
  Sender: FDA-Public Use
  Company Number: PHHY2013AU149588

PATIENT
  Age: 72 Year
  Sex: Female

DRUGS (2)
  1. ACLASTA [Suspect]
     Dosage: UNK UKN, UNK
     Route: 042
  2. VALIUM [Concomitant]
     Dosage: UNK UKN, UNK

REACTIONS (3)
  - Panic attack [Unknown]
  - Presyncope [Unknown]
  - Blood pressure systolic increased [Unknown]
